FAERS Safety Report 7459951-6 (Version None)
Quarter: 2011Q2

REPORT INFORMATION
  Report Type: 
  Country: None (occurrence: None)
  Receive Date: 20110505
  Receipt Date: 20110502
  Transmission Date: 20111010
  Serious: Yes (Other)
  Sender: FDA-Public Use
  Company Number: US-PFIZER INC-2008004768

PATIENT
  Sex: Male
  Weight: 79.4 kg

DRUGS (11)
  1. ACETYLSALICYLIC ACID [Concomitant]
     Indication: BLOOD DISORDER
     Dosage: 81 MG, 1X/DAY
     Route: 048
     Dates: start: 20010101
  2. BENADRYL [Concomitant]
     Dosage: UNK
  3. CHANTIX [Suspect]
     Dosage: 0.5 MG, 1X/DAY
  4. DIAZEPAM [Concomitant]
     Indication: TINNITUS
     Dosage: 5 MG, 2X/DAY
     Route: 048
  5. ESTER-C [Concomitant]
     Dosage: 1000 MG, UNK
     Route: 048
  6. VITAMIN D [Concomitant]
     Dosage: 400 IU, UNK
     Route: 048
  7. CHANTIX [Suspect]
     Dosage: 1 MG, 2X/DAY
     Dates: start: 20110101
  8. LIPOFLAVONOID [Concomitant]
     Indication: TINNITUS
     Dosage: UNK
  9. CHANTIX [Suspect]
     Indication: SMOKING CESSATION THERAPY
     Dosage: UNK MG, 1X/DAY
     Route: 048
     Dates: start: 20070101, end: 20080101
  10. CENTRUM SILVER [Concomitant]
     Dosage: UNK
     Route: 048
  11. CHANTIX [Suspect]
     Dosage: 0.5 MG, 1X/DAY
     Dates: start: 20110126, end: 20110101

REACTIONS (10)
  - INSOMNIA [None]
  - ATRIAL FIBRILLATION [None]
  - TINNITUS [None]
  - FATIGUE [None]
  - PNEUMONIA [None]
  - RHINORRHOEA [None]
  - ABNORMAL DREAMS [None]
  - UPPER-AIRWAY COUGH SYNDROME [None]
  - OROPHARYNGEAL PAIN [None]
  - NIGHTMARE [None]
